FAERS Safety Report 7937530-1 (Version None)
Quarter: 2011Q4

REPORT INFORMATION
  Report Type: 
  Country: None (occurrence: None)
  Receive Date: 20111123
  Receipt Date: 20111117
  Transmission Date: 20120403
  Serious: Yes (Hospitalization)
  Sender: FDA-Public Use
  Company Number: US-US-EMD SERONO, INC.-7020440

PATIENT
  Sex: Female
  Weight: 66 kg

DRUGS (4)
  1. REBIF [Suspect]
     Indication: MULTIPLE SCLEROSIS
     Route: 058
     Dates: start: 20091112
  2. REBIF [Suspect]
     Route: 058
  3. DILANTIN [Concomitant]
     Dates: start: 20100901
  4. DILANTIN [Concomitant]
     Indication: CONVULSION
     Dates: end: 20100901

REACTIONS (7)
  - MUSCULAR WEAKNESS [None]
  - GAIT DISTURBANCE [None]
  - SENSATION OF HEAVINESS [None]
  - INJECTION SITE ERYTHEMA [None]
  - INJECTION SITE PAIN [None]
  - CONVULSION [None]
  - MUSCLE SPASMS [None]
